FAERS Safety Report 17712628 (Version 1)
Quarter: 2020Q2

REPORT INFORMATION
  Report Type: Report from Study
  Country: None (occurrence: US)
  Receive Date: 20200427
  Receipt Date: 20200427
  Transmission Date: 20200714
  Serious: Yes (Hospitalization)
  Sender: FDA-Public Use
  Company Number: US-ABBVIE-20K-163-3379365-00

PATIENT
  Age: 84 Year
  Sex: Female
  Weight: 54.48 kg

DRUGS (1)
  1. CREON [Suspect]
     Active Substance: PANCRELIPASE AMYLASE\PANCRELIPASE LIPASE\PANCRELIPASE PROTEASE
     Indication: PANCREATIC FAILURE
     Dosage: 3 CAPSULES WITH MEALS, 1 PER SNACK
     Route: 048
     Dates: start: 201504

REACTIONS (4)
  - Nephrolithiasis [Not Recovered/Not Resolved]
  - Kidney infection [Recovered/Resolved]
  - Sepsis [Unknown]
  - Hypotension [Recovered/Resolved]

NARRATIVE: CASE EVENT DATE: 20200302
